FAERS Safety Report 6883112-2 (Version None)
Quarter: 2010Q3

REPORT INFORMATION
  Report Type: 
  Country: None (occurrence: None)
  Receive Date: 20100729
  Receipt Date: 20100726
  Transmission Date: 20110219
  Serious: Yes (Other)
  Sender: FDA-Public Use
  Company Number: US-BRISTOL-MYERS SQUIBB COMPANY-15209513

PATIENT
  Age: 76 Year
  Sex: Female

DRUGS (6)
  1. COUMADIN [Suspect]
  2. ZESTRIL [Concomitant]
  3. LASIX [Concomitant]
  4. LIPITOR [Concomitant]
  5. METFORMIN HCL [Concomitant]
  6. ASPIRIN [Concomitant]

REACTIONS (4)
  - FALL [None]
  - HIP FRACTURE [None]
  - URINARY INCONTINENCE [None]
  - URINE ANALYSIS ABNORMAL [None]
